FAERS Safety Report 14663224 (Version 1)
Quarter: 2018Q1

REPORT INFORMATION
  Report Type: Spontaneous
  Country: US (occurrence: US)
  Receive Date: 20180319
  Receipt Date: 20180319
  Transmission Date: 20180509
  Serious: No
  Sender: FDA-Public Use
  Company Number: None

PATIENT
  Sex: Female

DRUGS (1)
  1. IBRANCE [Suspect]
     Active Substance: PALBOCICLIB
     Indication: BREAST CANCER FEMALE
     Dosage: 100MG DAILY FOR 21 DAYS ON AND 7 DAYS OFF PO
     Route: 048
     Dates: start: 20180214

REACTIONS (5)
  - Malaise [None]
  - Nasopharyngitis [None]
  - Neutrophil count decreased [None]
  - Aphonia [None]
  - Productive cough [None]
